FAERS Safety Report 7203428-X (Version None)
Quarter: 2010Q4

REPORT INFORMATION
  Report Type: 
  Country: None (occurrence: None)
  Receive Date: 20101228
  Receipt Date: 20101228
  Transmission Date: 20110411
  Serious: Yes (Life-Threatening)
  Sender: FDA-Public Use
  Company Number: None

PATIENT
  Age: 52 Year
  Sex: Female
  Weight: 63.5036 kg

DRUGS (1)
  1. VAGIFEM [Suspect]
     Indication: VULVOVAGINAL DRYNESS
     Dosage: 25 MCG 2 X PER WEEK VAG
     Route: 067
     Dates: start: 20050101, end: 20060101

REACTIONS (3)
  - DRUG TOXICITY [None]
  - ENDOMETRIAL CANCER STAGE III [None]
  - NEOPLASM RECURRENCE [None]
